FAERS Safety Report 4428607-6 (Version None)
Quarter: 2004Q3

REPORT INFORMATION
  Report Type: 
  Country: None (occurrence: None)
  Receive Date: 20040816
  Receipt Date: 20040806
  Transmission Date: 20050211
  Serious: Yes (Hospitalization)
  Sender: FDA-Public Use
  Company Number: MK200408-0075-1

PATIENT
  Age: 78 Year
  Sex: Female

DRUGS (27)
  1. OPTIRAY 320 [Suspect]
     Indication: CATHETERISATION CARDIAC
     Dosage: 50 ML; ONCE
     Dates: start: 20031024, end: 20031024
  2. FUROSEMIDE [Concomitant]
  3. ALBUTEROL SULFATE [Concomitant]
  4. AMIODARONE HCL [Concomitant]
  5. CYCLOBENZAPRINE HCL [Concomitant]
  6. CYPROHEPATIDINE HCL [Concomitant]
  7. ALPRAZOLAM [Concomitant]
  8. ASPIRIN [Concomitant]
  9. CALCIUM ACETATE [Concomitant]
  10. ZOLPIDEM TARTRATE [Concomitant]
  11. SIMVASTATIN [Concomitant]
  12. PAROXETINE HCL [Concomitant]
  13. MIDAZOLAM HCL [Concomitant]
  14. FENOFIBRATE [Concomitant]
  15. EPOETIN ALFA [Concomitant]
  16. CLOPIDROGREL BISULFATE [Concomitant]
  17. IPATROPIUM BROMIDE [Concomitant]
  18. METOCLOPRAMIDE HCL [Concomitant]
  19. SEVELAMER HCL [Concomitant]
  20. SARNA [Concomitant]
  21. GUIFENESIN [Concomitant]
  22. NITROGLYCERIN [Concomitant]
  23. HEPARIN [Concomitant]
  24. ESOMEPRAZOLE MAGNESIUM [Concomitant]
  25. POTASSIUM CHLORIDE [Concomitant]
  26. SODIUM CHLORIDE INJ [Concomitant]
  27. ACETYLCYSTEINE [Concomitant]

REACTIONS (3)
  - DIALYSIS [None]
  - NEPHROPATHY [None]
  - RENAL FAILURE [None]
